FAERS Safety Report 9470492 (Version 1)
Quarter: 2013Q3

REPORT INFORMATION
  Report Type: Spontaneous
  Country: US (occurrence: None)
  Receive Date: 20130820
  Receipt Date: 20130820
  Transmission Date: 20140515
  Serious: Yes (Life-Threatening, Hospitalization, Disabling)
  Sender: FDA-Public Use
  Company Number: None

PATIENT
  Sex: 0

DRUGS (2)
  1. EMSAM [Suspect]
     Indication: DEPRESSION
     Dosage: ONE?ONCE DAILY?APPLIED AS MEDICATED PATCH TO SKIN?APPROXIMATELY 3 1/2 YEARS
  2. EMSAM [Suspect]
     Indication: ANXIETY
     Dosage: ONE?ONCE DAILY?APPLIED AS MEDICATED PATCH TO SKIN?APPROXIMATELY 3 1/2 YEARS

REACTIONS (8)
  - Panic attack [None]
  - Palpitations [None]
  - Dizziness [None]
  - Muscle twitching [None]
  - Headache [None]
  - Fatigue [None]
  - Mental disorder [None]
  - Balance disorder [None]
